FAERS Safety Report 7344888-3 (Version None)
Quarter: 2011Q1

REPORT INFORMATION
  Report Type: 
  Country: None (occurrence: None)
  Receive Date: 20110308
  Receipt Date: 20110308
  Transmission Date: 20110831
  Serious: Yes (Hospitalization)
  Sender: FDA-Public Use
  Company Number: None

PATIENT
  Age: 66 Year
  Sex: Female
  Weight: 62 kg

DRUGS (7)
  1. PREDNISONE [Concomitant]
  2. PREVACID [Concomitant]
  3. CETUXIMAB [Suspect]
     Indication: HEAD AND NECK CANCER
     Dosage: 400 MG/M2, LOADING, IV 250 MG/M2, IV
     Route: 042
     Dates: start: 20101129
  4. CETUXIMAB [Suspect]
     Indication: HEAD AND NECK CANCER
     Dosage: 400 MG/M2, LOADING, IV 250 MG/M2, IV
     Route: 042
     Dates: start: 20101206
  5. CETUXIMAB [Suspect]
     Indication: HEAD AND NECK CANCER
     Dosage: 400 MG/M2, LOADING, IV 250 MG/M2, IV
     Route: 042
     Dates: start: 20110201
  6. CETUXIMAB [Suspect]
     Indication: HEAD AND NECK CANCER
     Dosage: 400 MG/M2, LOADING, IV 250 MG/M2, IV
     Route: 042
     Dates: start: 20110221
  7. FLUOXETINE [Concomitant]

REACTIONS (1)
  - DYSPNOEA [None]
